FAERS Safety Report 8317773-8 (Version None)
Quarter: 2012Q2

REPORT INFORMATION
  Report Type: 
  Country: None (occurrence: None)
  Receive Date: 20120427
  Receipt Date: 20120423
  Transmission Date: 20120825
  Serious: Yes (Hospitalization)
  Sender: FDA-Public Use
  Company Number: BR-PFIZER INC-2012101152

PATIENT
  Age: 46 Year
  Sex: Male
  Weight: 81 kg

DRUGS (7)
  1. ATENOLOL [Concomitant]
     Indication: BLOOD PRESSURE INCREASED
     Dosage: 50MG IN THE MORNING AND 25MG AT NIGHT
     Dates: start: 20090101
  2. VITAMIN D [Concomitant]
     Indication: VITAMIN SUPPLEMENTATION
     Dosage: 10 DROPS IN THE MORNING
     Dates: start: 20110101
  3. METFORMIN HCL [Concomitant]
     Indication: BLOOD GLUCOSE INCREASED
     Dosage: 500 MG, 2X/DAY
     Dates: start: 20090101
  4. LIPITOR [Suspect]
     Indication: BLOOD CHOLESTEROL
     Dosage: 20 MG, 1X/DAY
     Route: 048
     Dates: start: 20100101, end: 20120423
  5. LIPITOR [Suspect]
     Indication: BLOOD TRIGLYCERIDES
     Dosage: 40 MG, UNK
     Dates: start: 20120423
  6. SYNTHROID [Concomitant]
     Indication: HORMONE REPLACEMENT THERAPY
     Dosage: 150 MG, DAILY
     Dates: start: 20110101
  7. MODURETIC 5-50 [Concomitant]
     Indication: DIURETIC THERAPY
     Dosage: 1 TABLET  DAILY
     Dates: start: 20090101

REACTIONS (3)
  - BLOOD CHOLESTEROL INCREASED [None]
  - BLOOD TRIGLYCERIDES INCREASED [None]
  - THYROID CANCER [None]
